FAERS Safety Report 17774299 (Version 2)
Quarter: 2020Q3

REPORT INFORMATION
  Report Type: Spontaneous
  Country: US (occurrence: US)
  Receive Date: 20200513
  Receipt Date: 20200821
  Transmission Date: 20201102
  Serious: Yes (Hospitalization, Other)
  Sender: FDA-Public Use
  Company Number: US-DRREDDYS-USA/USA/20/0122837

PATIENT
  Age: 42 Year
  Sex: Male

DRUGS (2)
  1. FLUOXETINE [Concomitant]
     Active Substance: FLUOXETINE HYDROCHLORIDE
     Indication: DEPRESSION
  2. QUETIAPINE FUMARATE TABLETS [Suspect]
     Active Substance: QUETIAPINE FUMARATE
     Indication: PRODUCT USED FOR UNKNOWN INDICATION
     Dosage: 3?4 DAYS
     Route: 048

REACTIONS (4)
  - Dysarthria [Not Recovered/Not Resolved]
  - Disturbance in attention [Recovering/Resolving]
  - Ataxia [Not Recovered/Not Resolved]
  - Condition aggravated [Not Recovered/Not Resolved]
